FAERS Safety Report 13057423 (Version 7)
Quarter: 2019Q2

REPORT INFORMATION
  Report Type: Spontaneous
  Country: CA (occurrence: CA)
  Receive Date: 20161223
  Receipt Date: 20190621
  Transmission Date: 20190711
  Serious: Yes (Other)
  Sender: FDA-Public Use
  Company Number: CA-ORION CORPORATION ORION PHARMA-TREX2016-2687

PATIENT
  Sex: Female

DRUGS (22)
  1. APO-PREDNISONE [Suspect]
     Active Substance: PREDNISONE
     Indication: RHEUMATOID ARTHRITIS
     Route: 065
  2. PREMARIN [Concomitant]
     Active Substance: ESTROGENS, CONJUGATED
     Route: 065
  3. METHOTREXATE (TRADE NAME UNKNOWN) [Suspect]
     Active Substance: METHOTREXATE
     Indication: RHEUMATOID ARTHRITIS
     Route: 065
  4. SULFASALAZINE. [Suspect]
     Active Substance: SULFASALAZINE
     Indication: RHEUMATOID ARTHRITIS
     Route: 065
  5. ORENCIA [Suspect]
     Active Substance: ABATACEPT
     Route: 065
  6. FOSFOMYCIN TROMETAMOL [Concomitant]
     Active Substance: FOSFOMYCIN TROMETHAMINE
     Route: 065
  7. XELJANZ [Concomitant]
     Active Substance: TOFACITINIB CITRATE
     Route: 065
  8. ACETAMINOPHEN W/OXYCODONE HYDROCHLORIDE [Concomitant]
     Active Substance: ACETAMINOPHEN\OXYCODONE HYDROCHLORIDE
     Route: 065
  9. APO-PREDNISONE [Suspect]
     Active Substance: PREDNISONE
     Indication: GAIT INABILITY
  10. HUMIRA [Suspect]
     Active Substance: ADALIMUMAB
     Indication: RHEUMATOID ARTHRITIS
     Route: 058
     Dates: start: 201308, end: 201410
  11. PREDNISONE. [Suspect]
     Active Substance: PREDNISONE
     Indication: RHEUMATOID ARTHRITIS
     Route: 065
  12. MONUROL [Concomitant]
     Active Substance: FOSFOMYCIN TROMETHAMINE
     Route: 065
  13. ORENCIA [Suspect]
     Active Substance: ABATACEPT
     Indication: RHEUMATOID ARTHRITIS
     Route: 065
     Dates: start: 201410, end: 201604
  14. WINPRED [Suspect]
     Active Substance: PREDNISONE
     Indication: RHEUMATOID ARTHRITIS
     Route: 065
  15. PERCOCET [Concomitant]
     Active Substance: ACETAMINOPHEN\OXYCODONE HYDROCHLORIDE
     Route: 065
  16. ARAVA [Suspect]
     Active Substance: LEFLUNOMIDE
     Indication: RHEUMATOID ARTHRITIS
     Route: 065
  17. LAX-A-DAY [Concomitant]
     Route: 065
  18. ACETAMINOPHEN. [Concomitant]
     Active Substance: ACETAMINOPHEN
     Route: 065
  19. MACROGOL [Concomitant]
     Active Substance: POLYETHYLENE GLYCOLS
     Route: 065
  20. ENBREL [Suspect]
     Active Substance: ETANERCEPT
     Indication: RHEUMATOID ARTHRITIS
     Route: 065
     Dates: start: 2009, end: 2013
  21. ABATACEPT [Suspect]
     Active Substance: ABATACEPT
     Indication: RHEUMATOID ARTHRITIS
     Route: 065
  22. GABAPENTIN. [Concomitant]
     Active Substance: GABAPENTIN
     Route: 065

REACTIONS (15)
  - Rheumatoid arthritis [Not Recovered/Not Resolved]
  - Anxiety [Not Recovered/Not Resolved]
  - Gait disturbance [Not Recovered/Not Resolved]
  - Osteoporosis [Not Recovered/Not Resolved]
  - Foot deformity [Not Recovered/Not Resolved]
  - Feeling abnormal [Not Recovered/Not Resolved]
  - Diabetes mellitus [Not Recovered/Not Resolved]
  - Spinal disorder [Not Recovered/Not Resolved]
  - Contraindicated product administered [Unknown]
  - Finger deformity [Not Recovered/Not Resolved]
  - Loss of personal independence in daily activities [Not Recovered/Not Resolved]
  - Wrist deformity [Not Recovered/Not Resolved]
  - Osteoarthritis [Not Recovered/Not Resolved]
  - Drug ineffective [Not Recovered/Not Resolved]
  - Drug intolerance [Not Recovered/Not Resolved]
